FAERS Safety Report 25085737 (Version 1)
Quarter: 2025Q1

REPORT INFORMATION
  Report Type: Spontaneous
  Country: FI (occurrence: FI)
  Receive Date: 20250317
  Receipt Date: 20250317
  Transmission Date: 20250409
  Serious: Yes (Life-Threatening)
  Sender: GALPHARM INTERNATIONAL
  Company Number: None

PATIENT
  Age: 38 Year
  Sex: Female

DRUGS (2)
  1. LEVONORGESTREL [Suspect]
     Active Substance: LEVONORGESTREL
     Indication: Post coital contraception
     Route: 048
     Dates: start: 202311, end: 202311
  2. LEVOTHYROXINE [Concomitant]
     Active Substance: LEVOTHYROXINE
     Indication: Hypothyroidism
     Route: 048
     Dates: start: 202311

REACTIONS (6)
  - Suicidal ideation [Recovered/Resolved with Sequelae]
  - Haemorrhage [Recovered/Resolved with Sequelae]
  - Heavy menstrual bleeding [Recovered/Resolved with Sequelae]
  - Stress [Recovered/Resolved with Sequelae]
  - Depression [Recovered/Resolved with Sequelae]
  - Tearfulness [Recovered/Resolved with Sequelae]

NARRATIVE: CASE EVENT DATE: 20231101
